FAERS Safety Report 11220212 (Version 1)
Quarter: 2015Q2

REPORT INFORMATION
  Report Type: Spontaneous
  Country: None (occurrence: None)
  Receive Date: 20150624
  Receipt Date: 20150624
  Transmission Date: 20150821
  Serious: No
  Sender: FDA-Public Use
  Company Number: None

PATIENT
  Age: 78 Year
  Sex: Female
  Weight: 42.64 kg

DRUGS (21)
  1. AMLODIPINE BESYLATE. [Suspect]
     Active Substance: AMLODIPINE BESYLATE
     Indication: HYPERTENSION
     Dosage: 1 PILL
     Route: 048
     Dates: start: 20150530, end: 20150623
  2. COZAAR [Concomitant]
     Active Substance: LOSARTAN POTASSIUM
  3. SINGULAIR [Concomitant]
     Active Substance: MONTELUKAST SODIUM
  4. XOPENEX HFA [Concomitant]
     Active Substance: LEVALBUTEROL TARTRATE
  5. VENTOLIN HFA INHALER [Concomitant]
  6. GABAPENTIN. [Concomitant]
     Active Substance: GABAPENTIN
  7. ALBUTEROL INHALATION SOLUTION [Concomitant]
     Active Substance: ALBUTEROL
  8. ZANTAC [Concomitant]
     Active Substance: RANITIDINE HYDROCHLORIDE
  9. MILK THISTLE [Concomitant]
     Active Substance: MILK THISTLE
  10. CHOLEST-OFF [Concomitant]
  11. CAFFEINE. [Concomitant]
     Active Substance: CAFFEINE
  12. SUDAFED [Concomitant]
     Active Substance: PSEUDOEPHEDRINE HYDROCHLORIDE
  13. ACETAMINOPHEN. [Concomitant]
     Active Substance: ACETAMINOPHEN
  14. SPIRIVA INHALER [Concomitant]
  15. OXYGEN. [Concomitant]
     Active Substance: OXYGEN
  16. XANAX [Concomitant]
     Active Substance: ALPRAZOLAM
  17. CENTRUM SILVER [Concomitant]
     Active Substance: VITAMINS
  18. EXCEDRIN ASPIRIN-FREE [Concomitant]
  19. OSCAL ULTRA [Concomitant]
  20. VITAMIN D [Concomitant]
     Active Substance: CHOLECALCIFEROL
  21. POLYETHYLENE GLYCOL [Concomitant]
     Active Substance: POLYETHYLENE GLYCOLS

REACTIONS (3)
  - Fatigue [None]
  - Somnolence [None]
  - Abdominal pain [None]

NARRATIVE: CASE EVENT DATE: 20150623
